FAERS Safety Report 12588748 (Version 1)
Quarter: 2016Q3

REPORT INFORMATION
  Report Type: Spontaneous
  Country: US (occurrence: US)
  Receive Date: 20160725
  Receipt Date: 20160725
  Transmission Date: 20161109
  Serious: No
  Sender: FDA-Public Use
  Company Number: US-JNJFOC-20160603591

PATIENT
  Age: 62 Year
  Sex: Female
  Weight: 54.43 kg

DRUGS (2)
  1. TYLENOL 8 HR ARTHRITIS PAIN [Suspect]
     Active Substance: ACETAMINOPHEN
     Route: 048
  2. TYLENOL 8 HR ARTHRITIS PAIN [Suspect]
     Active Substance: ACETAMINOPHEN
     Indication: ARTHRITIS
     Dosage: ONCE
     Route: 048
     Dates: start: 20160529, end: 20160602

REACTIONS (4)
  - Inappropriate schedule of drug administration [Unknown]
  - Foreign body [Unknown]
  - Wrong technique in product usage process [Unknown]
  - Product size issue [Unknown]
